FAERS Safety Report 4665462-3 (Version None)
Quarter: 2005Q2

REPORT INFORMATION
  Report Type: 
  Country: None (occurrence: None)
  Receive Date: 20050517
  Receipt Date: 20050504
  Transmission Date: 20051028
  Serious: Yes (Hospitalization, Other)
  Sender: FDA-Public Use
  Company Number: USA050597281

PATIENT
  Age: 82 Year
  Sex: Female

DRUGS (4)
  1. FORTEO [Suspect]
     Dates: start: 20050101, end: 20050401
  2. LOTREL [Concomitant]
  3. PREMARIN [Concomitant]
  4. ALENDRONATE SODIUM [Concomitant]

REACTIONS (2)
  - HAEMORRHAGE URINARY TRACT [None]
  - PLATELET COUNT DECREASED [None]
